FAERS Safety Report 16078090 (Version 1)
Quarter: 2019Q1

REPORT INFORMATION
  Report Type: Spontaneous
  Country: US (occurrence: US)
  Receive Date: 20190315
  Receipt Date: 20190315
  Transmission Date: 20190418
  Serious: No
  Sender: FDA-Public Use
  Company Number: US-ELI_LILLY_AND_COMPANY-US201902012217

PATIENT
  Sex: Male

DRUGS (2)
  1. TALTZ [Suspect]
     Active Substance: IXEKIZUMAB
     Dosage: 80 MG
     Route: 058
     Dates: start: 201807
  2. TALTZ [Suspect]
     Active Substance: IXEKIZUMAB
     Indication: PSORIATIC ARTHROPATHY
     Dosage: 80 MG, UNKNOWN
     Route: 065
     Dates: start: 201807

REACTIONS (5)
  - Arthritis [Unknown]
  - Underdose [Unknown]
  - Injection site swelling [Unknown]
  - Feeling abnormal [Unknown]
  - Underdose [Unknown]

NARRATIVE: CASE EVENT DATE: 201812
